FAERS Safety Report 6300653-7 (Version None)
Quarter: 2009Q3

REPORT INFORMATION
  Report Type: 
  Country: None (occurrence: None)
  Receive Date: 20090803
  Receipt Date: 20090717
  Transmission Date: 20100115
  Serious: Yes (Other)
  Sender: FDA-Public Use
  Company Number: CERZ-1000552

PATIENT
  Sex: Female
  Weight: 53 kg

DRUGS (6)
  1. CEREZYME [Suspect]
     Indication: GAUCHER'S DISEASE
     Dosage: 60 U/KG, Q2W, INTRAVENOUS; 75 IU/KG, Q2W;
     Route: 042
  2. OXYGEN (OXYGEN) [Concomitant]
  3. TRACLEER [Concomitant]
  4. REVATIO [Concomitant]
  5. DIGOXIN [Concomitant]
  6. CALCIUM (CALCIUM) [Concomitant]

REACTIONS (5)
  - CARDIAC FAILURE [None]
  - DRUG INEFFECTIVE [None]
  - FALL [None]
  - HUMERUS FRACTURE [None]
  - RESPIRATORY FAILURE [None]
